FAERS Safety Report 19617048 (Version 1)
Quarter: 2021Q3

REPORT INFORMATION
  Report Type: Spontaneous
  Country: US (occurrence: US)
  Receive Date: 20210727
  Receipt Date: 20210727
  Transmission Date: 20211014
  Serious: No
  Sender: FDA-Public Use
  Company Number: US-ABBVIE-20K-163-3673200-00

PATIENT
  Sex: Female
  Weight: 65.83 kg

DRUGS (1)
  1. SYNTHROID [Suspect]
     Active Substance: LEVOTHYROXINE SODIUM
     Indication: HYPOTHYROIDISM
     Route: 048
     Dates: start: 2020

REACTIONS (5)
  - Gastrointestinal inflammation [Not Recovered/Not Resolved]
  - Vertigo [Recovered/Resolved]
  - Heart rate decreased [Recovered/Resolved]
  - Palpitations [Recovered/Resolved]
  - Tinnitus [Not Recovered/Not Resolved]

NARRATIVE: CASE EVENT DATE: 2020
